FAERS Safety Report 8155536-7 (Version None)
Quarter: 2012Q1

REPORT INFORMATION
  Report Type: 
  Country: None (occurrence: None)
  Receive Date: 20120215
  Receipt Date: 20120203
  Transmission Date: 20120608
  Serious: Yes (Other)
  Sender: FDA-Public Use
  Company Number: 1000028375

PATIENT
  Age: 64 Year
  Sex: Female

DRUGS (2)
  1. LEVOTHYROXINE SODIUM [Concomitant]
  2. ESCITALOPRAM OXALATE [Suspect]
     Dates: start: 20120125

REACTIONS (1)
  - HYPERTHYROIDISM [None]
